FAERS Safety Report 23967549 (Version 1)
Quarter: 2024Q2

REPORT INFORMATION
  Report Type: Spontaneous
  Country: US (occurrence: US)
  Receive Date: 20240612
  Receipt Date: 20240612
  Transmission Date: 20240717
  Serious: No
  Sender: FDA-Public Use
  Company Number: US-BIOVITRUM-2024-US-008418

PATIENT
  Age: 77 Year
  Sex: Female

DRUGS (1)
  1. VONJO [Suspect]
     Active Substance: PACRITINIB
     Indication: Myeloproliferative neoplasm
     Dosage: DAILY
     Route: 048

REACTIONS (5)
  - Anaemia [Unknown]
  - Haemoglobin abnormal [Unknown]
  - Fatigue [Unknown]
  - Cough [Unknown]
  - Off label use [Recovered/Resolved]
